FAERS Safety Report 12811426 (Version 1)
Quarter: 2016Q4

REPORT INFORMATION
  Report Type: Spontaneous
  Country: US (occurrence: US)
  Receive Date: 20161005
  Receipt Date: 20161005
  Transmission Date: 20170207
  Serious: No
  Sender: FDA-Public Use
  Company Number: US-PFIZER INC-2016461177

PATIENT
  Sex: Female

DRUGS (2)
  1. DILANTIN-125 [Suspect]
     Active Substance: PHENYTOIN
     Indication: SEIZURE
     Dosage: 400 MG, UNK
     Route: 048
     Dates: start: 2005
  2. DILANTIN [Suspect]
     Active Substance: PHENYTOIN
     Indication: SEIZURE
     Dosage: 200 MG, UNK
     Route: 042
     Dates: start: 2005

REACTIONS (8)
  - Incorrect drug administration rate [Unknown]
  - Muscle twitching [Not Recovered/Not Resolved]
  - Dizziness [Unknown]
  - Feeling abnormal [Not Recovered/Not Resolved]
  - Burning sensation [Unknown]
  - Vein disorder [Unknown]
  - Vision blurred [Unknown]
  - Chest pain [Unknown]
